FAERS Safety Report 11844520 (Version 1)
Quarter: 2015Q4

REPORT INFORMATION
  Report Type: Spontaneous
  Country: US (occurrence: None)
  Receive Date: 20151216
  Receipt Date: 20151216
  Transmission Date: 20160305
  Serious: Yes (Other)
  Sender: FDA-Public Use
  Company Number: None

PATIENT
  Age: 67 Year
  Sex: Male
  Weight: 100 kg

DRUGS (1)
  1. RIVAROXABAN 20MG JANSSEN PHARMACEUTICALS [Suspect]
     Active Substance: RIVAROXABAN
     Dosage: FROM 11/6 TILL CURRENT
     Route: 048
     Dates: start: 20151106

REACTIONS (2)
  - Pain in extremity [None]
  - Musculoskeletal stiffness [None]

NARRATIVE: CASE EVENT DATE: 20151125
